FAERS Safety Report 9855616 (Version 2)
Quarter: 2015Q2

REPORT INFORMATION
  Report Type: Spontaneous
  Country: US (occurrence: US)
  Receive Date: 20140130
  Receipt Date: 20150508
  Transmission Date: 20150821
  Serious: Yes (Hospitalization, Other)
  Sender: FDA-Public Use
  Company Number: US-BAYER-2014-012548

PATIENT
  Age: 25 Year
  Sex: Female
  Weight: 53.52 kg

DRUGS (3)
  1. MISOPROSTOL. [Concomitant]
     Active Substance: MISOPROSTOL
  2. MIRENA [Suspect]
     Active Substance: LEVONORGESTREL
     Indication: CONTRACEPTION
     Dosage: 20 MCG/24HR, CONT
     Route: 015
     Dates: start: 20081011, end: 20100520
  3. IMPLANON [Concomitant]
     Active Substance: ETONOGESTREL

REACTIONS (8)
  - Drug ineffective [None]
  - Off label use of device [None]
  - Pregnancy with contraceptive device [None]
  - Medical device discomfort [None]
  - Embedded device [None]
  - Uterine perforation [None]
  - Injury [None]
  - Medical device pain [None]

NARRATIVE: CASE EVENT DATE: 201005
